FAERS Safety Report 4866147-0 (Version None)
Quarter: 2005Q4

REPORT INFORMATION
  Report Type: 
  Country: None (occurrence: None)
  Receive Date: 20051227
  Receipt Date: 20051122
  Transmission Date: 20060501
  Serious: Yes (Death, Other)
  Sender: FDA-Public Use
  Company Number: GBWYE164223NOV05

PATIENT
  Sex: Female
  Weight: 71 kg

DRUGS (6)
  1. ENBREL [Suspect]
     Indication: RHEUMATOID ARTHRITIS
     Dosage: 25MG, FREQUENCY UNKNOWN
     Route: 058
     Dates: start: 20050520, end: 20050920
  2. FOLIC ACID [Concomitant]
     Indication: PROPHYLAXIS
     Dosage: 5MG, FREQUENCY UNKNOWN
     Route: 048
     Dates: start: 20040212
  3. PREDNISOLONE [Concomitant]
     Indication: RHEUMATOID ARTHRITIS
     Dosage: 5/2.5G ALTERNATE DAYS
     Route: 048
  4. INDAPAMIDE [Concomitant]
     Dosage: 2.5MG, FREQUENCY UNKNOWN
     Route: 048
  5. RANITIDINE [Concomitant]
     Indication: PROPHYLAXIS
     Dosage: 150MG, FREQUENCY UNKNOWN
     Route: 048
  6. METHOTREXATE [Concomitant]
     Route: 065
     Dates: start: 20040210

REACTIONS (5)
  - CHEST PAIN [None]
  - METASTASES TO LIVER [None]
  - METASTASES TO LUNG [None]
  - METASTATIC RENAL CELL CARCINOMA [None]
  - PLEURITIC PAIN [None]
